FAERS Safety Report 25978041 (Version 1)
Quarter: 2025Q4

REPORT INFORMATION
  Report Type: Report from Study
  Country: CN (occurrence: CN)
  Receive Date: 20251030
  Receipt Date: 20251030
  Transmission Date: 20260117
  Serious: Yes (Other)
  Sender: JOHNSON AND JOHNSON
  Company Number: CN-JNJFOC-20251027630

PATIENT
  Sex: Female

DRUGS (1)
  1. RYBREVANT [Suspect]
     Active Substance: AMIVANTAMAB-VMJW
     Indication: Lung neoplasm malignant
     Dosage: 700 MG/VIAL, 7 ML
     Route: 042

REACTIONS (3)
  - Oxygen saturation abnormal [Not Recovered/Not Resolved]
  - Breath holding [Not Recovered/Not Resolved]
  - Dyspnoea [Not Recovered/Not Resolved]
